FAERS Safety Report 18928305 (Version 2)
Quarter: 2021Q2

REPORT INFORMATION
  Report Type: Report from Study
  Country: US (occurrence: US)
  Receive Date: 20210223
  Receipt Date: 20210407
  Transmission Date: 20210717
  Serious: Yes (Death, Hospitalization, Other)
  Sender: FDA-Public Use
  Company Number: US-JNJFOC-20210225027

PATIENT
  Age: 87 Year
  Sex: Male

DRUGS (2)
  1. ESKETAMINE [Suspect]
     Active Substance: ESKETAMINE
     Indication: DEPRESSION
     Dates: start: 20210113, end: 20210113
  2. ESKETAMINE [Suspect]
     Active Substance: ESKETAMINE
     Dates: start: 20210115, end: 20210115

REACTIONS (4)
  - Therapeutic product effect incomplete [Unknown]
  - General physical health deterioration [Unknown]
  - Death [Fatal]
  - Hypophagia [Unknown]
